FAERS Safety Report 10236232 (Version 1)
Quarter: 2014Q1

REPORT INFORMATION
  Report Type: Spontaneous
  Country: US (occurrence: None)
  Receive Date: 20140306
  Receipt Date: 20140306
  Transmission Date: 20141002
  Serious: Yes (Other)
  Sender: FDA-Public Use
  Company Number: 163-21880-13032612

PATIENT
  Age: 67 Year
  Sex: Male

DRUGS (13)
  1. REVLIMID (LENALIDOMIDE) (25 MILLIGRAM, CAPSULES) [Suspect]
     Indication: PLASMA CELL MYELOMA
     Dosage: 18.75 MG, 21 IN 28 D, PO
     Route: 048
     Dates: start: 201105, end: 201302
  2. METFORMIN (METFORMIN) [Concomitant]
  3. FLOMAX (TAMSULOSIN HYDROCHLORIDE) (UNKNOWN) [Concomitant]
  4. PREDNISONE (PREDNISONE) [Concomitant]
  5. VITAMIN B12 (CYANOCOBALAMIN) [Concomitant]
  6. COENZYME Q-10 (UBIDECARENONE) [Concomitant]
  7. ALLOPURINOL (ALLOPURINOL) [Concomitant]
  8. BABY ASPIRIN (ACETYLSALICYLIC ACID) [Concomitant]
  9. FLEXERIL (CYCLOBENZAPRINE HYDROCHLORIDE) [Concomitant]
  10. VICODIN (VICODIN) [Concomitant]
  11. MVI (MVI) [Concomitant]
  12. CYCLOBENZAPRINE (CYCLOBENZAPRINE) [Concomitant]
  13. DEXAMETHASONE (DEXAMETHASONE) [Concomitant]

REACTIONS (2)
  - Treatment failure [None]
  - Drug intolerance [None]
